FAERS Safety Report 19459618 (Version 2)
Quarter: 2021Q3

REPORT INFORMATION
  Report Type: Report from Study
  Country: US (occurrence: US)
  Receive Date: 20210624
  Receipt Date: 20210712
  Transmission Date: 20211014
  Serious: Yes (Hospitalization, Disabling, Other)
  Sender: FDA-Public Use
  Company Number: US-BRISTOL-MYERS SQUIBB COMPANY-BMS-2020-036077

PATIENT
  Age: 81 Year
  Sex: Male

DRUGS (15)
  1. NIVOLUMAB [Suspect]
     Active Substance: NIVOLUMAB
     Dosage: UNK
     Route: 065
     Dates: start: 20190710
  2. IMODIUM [Concomitant]
     Active Substance: LOPERAMIDE HYDROCHLORIDE
     Indication: PRODUCT USED FOR UNKNOWN INDICATION
     Route: 065
  3. MIRTAZAPINE. [Concomitant]
     Active Substance: MIRTAZAPINE
     Indication: PRODUCT USED FOR UNKNOWN INDICATION
     Dosage: 15 MILLIGRAM
     Route: 065
  4. JALYN [Concomitant]
     Active Substance: DUTASTERIDE\TAMSULOSIN HYDROCHLORIDE
     Indication: PROSTATIC DISORDER
     Dosage: 0.5 MG/0.4 MG
  5. SYNTHROID [Concomitant]
     Active Substance: LEVOTHYROXINE SODIUM
     Indication: PRODUCT USED FOR UNKNOWN INDICATION
     Dosage: 75 MICROGRAM, QD
     Route: 065
     Dates: start: 20200109
  6. SYNTHROID [Concomitant]
     Active Substance: LEVOTHYROXINE SODIUM
     Dosage: 100 MICROGRAM, QD
     Route: 065
     Dates: start: 20200210
  7. EUTHYROX [Concomitant]
     Active Substance: LEVOTHYROXINE SODIUM
     Indication: PRODUCT USED FOR UNKNOWN INDICATION
     Dosage: 150 MICROGRAM
     Route: 065
     Dates: start: 202004
  8. SYNTHROID [Concomitant]
     Active Substance: LEVOTHYROXINE SODIUM
     Dosage: 150 MICROGRAM, QD
     Route: 065
     Dates: start: 202004
  9. EUTHROID [Concomitant]
     Active Substance: LEVOTHYROXINE SODIUM\LIOTHYRONINE SODIUM
     Indication: THYROID DISORDER
     Dosage: 75 ^MG^
     Route: 065
     Dates: start: 20200109
  10. CARBOPLATIN. [Concomitant]
     Active Substance: CARBOPLATIN
     Indication: PRODUCT USED FOR UNKNOWN INDICATION
     Dosage: UNK
     Route: 065
  11. FLUTICASONE PROPIONATE. [Concomitant]
     Active Substance: FLUTICASONE PROPIONATE
     Indication: HYPERSENSITIVITY
     Dosage: OCCASIONALLY
     Route: 065
  12. EUTHROID [Concomitant]
     Active Substance: LEVOTHYROXINE SODIUM\LIOTHYRONINE SODIUM
     Dosage: 200 ^MG^ PER DAY
     Route: 065
     Dates: start: 20210628
  13. NIVOLUMAB [Suspect]
     Active Substance: NIVOLUMAB
     Indication: NON-SMALL CELL LUNG CANCER
     Dosage: 480 MILLIGRAM, Q4WK
     Route: 042
     Dates: start: 20191105, end: 20201229
  14. SYNTHROID [Concomitant]
     Active Substance: LEVOTHYROXINE SODIUM
     Dosage: 150 MICROGRAM, QD
     Route: 065
     Dates: start: 20200512
  15. PANTOPRAZOLE [Concomitant]
     Active Substance: PANTOPRAZOLE
     Indication: HIATUS HERNIA
     Dosage: 40 MILLIGRAM
     Route: 065

REACTIONS (36)
  - Pancreatic disorder [Unknown]
  - Fracture [Unknown]
  - Drug ineffective [Unknown]
  - Lymphadenopathy [Unknown]
  - Urinary incontinence [Unknown]
  - Thrombosis [Unknown]
  - Nocturia [Unknown]
  - Cough [Unknown]
  - Rash [Unknown]
  - Muscular weakness [Unknown]
  - Asthenia [Unknown]
  - Gait inability [Unknown]
  - Rocky mountain spotted fever [Unknown]
  - Weight decreased [Unknown]
  - Pulmonary thrombosis [Unknown]
  - Red blood cell count decreased [Unknown]
  - Hypoacusis [Unknown]
  - Skin disorder [None]
  - Fall [Unknown]
  - Weight increased [Unknown]
  - Taste disorder [Unknown]
  - Iron deficiency anaemia [Unknown]
  - Diarrhoea [Unknown]
  - Hypothyroidism [Unknown]
  - Arthralgia [Unknown]
  - Dysstasia [Unknown]
  - Malignant neoplasm progression [Unknown]
  - Hypoaesthesia [Unknown]
  - Pancreatic failure [Unknown]
  - Hypersensitivity [Unknown]
  - Skin atrophy [Unknown]
  - Movement disorder [Unknown]
  - Bronchitis [Unknown]
  - Platelet disorder [Unknown]
  - Affective disorder [Not Recovered/Not Resolved]
  - Eating disorder [Unknown]

NARRATIVE: CASE EVENT DATE: 20210321
